FAERS Safety Report 8573430-4 (Version None)
Quarter: 2012Q3

REPORT INFORMATION
  Report Type: 
  Country: None (occurrence: None)
  Receive Date: 20120806
  Receipt Date: 20070424
  Transmission Date: 20120928
  Serious: Yes (Other)
  Sender: FDA-Public Use
  Company Number: CO-PFIZER INC-2012189320

PATIENT
  Age: 43 Year
  Sex: Female

DRUGS (4)
  1. ENALAPRIL MALEATE [Concomitant]
     Dosage: 20 MG, EVERY 12 HOURS
  2. LIPITOR [Suspect]
     Indication: DYSLIPIDAEMIA
     Dosage: 10 MG, 1X/DAY
  3. QUINAPRIL AND HYDROCHLOROTHIAZIDE [Suspect]
     Indication: HYPERTENSION
     Dosage: QUINAPRIL/HYDROCHLOROTHIAZIDE 20/12.5 MG EVERY 12 HOURS
  4. CIPROFLOXACIN [Concomitant]
     Dosage: 500 MG, 1X/DAY

REACTIONS (4)
  - OBESITY [None]
  - HYPERTENSIVE EMERGENCY [None]
  - CHEST PAIN [None]
  - LEUKOCYTURIA [None]
